FAERS Safety Report 23125814 (Version 2)
Quarter: 2025Q4

REPORT INFORMATION
  Report Type: Spontaneous
  Country: RU (occurrence: RU)
  Receive Date: 20231030
  Receipt Date: 20251013
  Transmission Date: 20260117
  Serious: Yes (Death, Life-Threatening, Hospitalization, Other)
  Sender: GE HEALTHCARE
  Company Number: RU-GE HEALTHCARE-2023CSU009605

PATIENT
  Age: 68 Year
  Sex: Female
  Weight: 83 kg

DRUGS (2)
  1. CLARISCAN [Suspect]
     Active Substance: GADOTERATE MEGLUMINE
     Indication: Magnetic resonance imaging
     Dosage: 15 ML, TOTAL
     Route: 042
     Dates: start: 20231023
  2. CAPOTEN [Concomitant]
     Active Substance: CAPTOPRIL
     Indication: Hypertension
     Dosage: 1 TABLET
     Dates: start: 20231023, end: 20231023

REACTIONS (15)
  - Death [Fatal]
  - Loss of consciousness [Unknown]
  - Urinary incontinence [Unknown]
  - Foaming at mouth [Unknown]
  - Pallor [Unknown]
  - Anaphylactic reaction [Unknown]
  - Hypopnoea [Unknown]
  - Cold sweat [Unknown]
  - Heart rate decreased [Unknown]
  - Seizure [Unknown]
  - Arrhythmia [Unknown]
  - Cyanosis [Unknown]
  - Salivary hypersecretion [Unknown]
  - Swelling face [Unknown]
  - Blood pressure decreased [Unknown]

NARRATIVE: CASE EVENT DATE: 20231023
